FAERS Safety Report 20847999 (Version 4)
Quarter: 2022Q2

REPORT INFORMATION
  Report Type: Report from Study
  Country: MD (occurrence: None)
  Receive Date: 20220519
  Receipt Date: 20220608
  Transmission Date: 20220721
  Serious: Yes (Other)
  Sender: FDA-Public Use
  Company Number: MD-ROCHE-3096777

PATIENT
  Age: 55 Year
  Sex: Female
  Weight: 52 kg

DRUGS (5)
  1. ATEZOLIZUMAB [Suspect]
     Active Substance: ATEZOLIZUMAB
     Indication: Metastatic neoplasm
     Route: 041
     Dates: start: 20220126
  2. TIRAGOLUMAB [Suspect]
     Active Substance: TIRAGOLUMAB
     Indication: Metastatic neoplasm
     Route: 042
     Dates: start: 20220126
  3. ATEZOLIZUMAB [Suspect]
     Active Substance: ATEZOLIZUMAB
     Indication: Metastatic neoplasm
     Dosage: START DATE OF MOST RECENT DOSE OF STUDY DRUG PRIOR TO SAE WAS 15/DEC/2021
     Route: 058
     Dates: start: 20211215
  4. TIRAGOLUMAB [Suspect]
     Active Substance: TIRAGOLUMAB
     Indication: Metastatic neoplasm
     Dosage: START DATE OF MOST RECENT DOSE OF STUDY DRUG PRIOR TO AE 15/DEC/2021
     Route: 058
     Dates: start: 20211215
  5. DEXALGIN [Concomitant]
     Indication: Tumour pain
     Route: 030

REACTIONS (2)
  - Hyperkalaemia [Recovered/Resolved]
  - Blood creatinine increased [Not Recovered/Not Resolved]

NARRATIVE: CASE EVENT DATE: 20220422
